FAERS Safety Report 5572033-3 (Version None)
Quarter: 2007Q4

REPORT INFORMATION
  Report Type: 
  Country: None (occurrence: None)
  Receive Date: 20071219
  Receipt Date: 20071205
  Transmission Date: 20080405
  Serious: Yes (Other)
  Sender: FDA-Public Use
  Company Number: DSU-2007-00965

PATIENT
  Age: 62 Year
  Sex: Male
  Weight: 106.5953 kg

DRUGS (4)
  1. BENICAR [Suspect]
     Indication: HYPERTENSION
     Dosage: 40 MG (40 MG, QD), PER ORAL
     Route: 048
     Dates: start: 20060101
  2. CHANTIX [Suspect]
     Indication: SMOKING CESSATION THERAPY
     Dosage: 2 MG  ( 1 MG, BID), PER ORAL
     Route: 048
     Dates: start: 20071001
  3. SULAR [Suspect]
     Indication: HYPERTENSION
     Dosage: 10 MG (10 MG, QD)
     Dates: start: 20070101
  4. NAPREPAN (NAPROXEN SODIUM) [Concomitant]

REACTIONS (5)
  - HEADACHE [None]
  - HYPOTENSION [None]
  - NAUSEA [None]
  - PARAESTHESIA [None]
  - VOLUME BLOOD DECREASED [None]
